FAERS Safety Report 10150998 (Version 2)
Quarter: 2014Q2

REPORT INFORMATION
  Report Type: Spontaneous
  Country: US (occurrence: US)
  Receive Date: 20140502
  Receipt Date: 20140527
  Transmission Date: 20141212
  Serious: No
  Sender: FDA-Public Use
  Company Number: US-PFIZER INC-2014121338

PATIENT
  Age: 64 Year
  Sex: Male
  Weight: 86.17 kg

DRUGS (1)
  1. SUTENT [Suspect]
     Indication: NEOPLASM MALIGNANT
     Dosage: 25 MG, 1X/DAY
     Route: 048

REACTIONS (2)
  - Influenza [Recovering/Resolving]
  - Nasopharyngitis [Recovering/Resolving]
